FAERS Safety Report 9553105 (Version 1)
Quarter: 2013Q3

REPORT INFORMATION
  Report Type: Spontaneous
  Country: GB (occurrence: GB)
  Receive Date: 20130925
  Receipt Date: 20130925
  Transmission Date: 20140515
  Serious: Yes (Hospitalization, Other)
  Sender: FDA-Public Use
  Company Number: PHFR2013GB005353

PATIENT
  Age: 51 Year
  Sex: Male

DRUGS (16)
  1. COLCHICINE [Suspect]
     Indication: GOUT
     Dosage: 500 UG
     Route: 048
     Dates: start: 20061026
  2. COLCHICINE [Suspect]
     Dosage: UNK SELF-REDUCED DUE TO SIDE-EFFECTS TO 6 PER DAY
     Route: 048
  3. COLCHICINE [Suspect]
     Dosage: 500 UG, DAILY
     Route: 048
     Dates: start: 20061102
  4. DICLOFENAC [Suspect]
     Indication: GOUT
     Dosage: UNK UKN, UNK
     Route: 048
     Dates: start: 20061026, end: 20061102
  5. LISINOPRIL [Concomitant]
     Dosage: 20 MG QD
  6. INSULATARD//INSULIN ISOPHANE PORCINE [Concomitant]
     Dosage: UNK UKN, UNK
     Route: 058
  7. ASPIRIN [Concomitant]
     Dosage: 75 MG QD
  8. OMEPRAZOLE [Concomitant]
     Dosage: 20 MG QD
  9. ATENOLOL [Concomitant]
     Dosage: 50 MG QD
  10. BEZAFIBRATE [Concomitant]
     Dosage: 400 MG QD
  11. SIMVASTATIN [Concomitant]
     Dosage: 40 MG QD
  12. AMLODIPINE [Concomitant]
     Dosage: 5 MG QD
  13. FERROUS SULPHATE [Concomitant]
  14. PORK ACTRAPID [Concomitant]
  15. BENDROFLUMETHIAZIDE [Concomitant]
     Dosage: 2.5 MG QD
  16. CO-DYDRAMOL [Concomitant]
     Dosage: UNK (PATIENT WAS TAKING ABOVE RECOMMENDED LIMIT)

REACTIONS (9)
  - Renal failure acute [Recovered/Resolved]
  - Metabolic acidosis [Recovered/Resolved]
  - Weight decreased [Unknown]
  - Malaise [Unknown]
  - Dehydration [Unknown]
  - Inflammatory marker increased [Unknown]
  - Drug dispensing error [Unknown]
  - Pallor [Unknown]
  - Diarrhoea [Recovered/Resolved]
